FAERS Safety Report 9033177 (Version 2)
Quarter: 2013Q1

REPORT INFORMATION
  Report Type: Spontaneous
  Country: US (occurrence: US)
  Receive Date: 20130128
  Receipt Date: 20130211
  Transmission Date: 20140127
  Serious: Yes (Hospitalization, Other)
  Sender: FDA-Public Use
  Company Number: US-AMGEN-USASP2013004410

PATIENT
  Age: 38 Year
  Sex: Female

DRUGS (1)
  1. ENBREL [Suspect]
     Indication: RHEUMATOID ARTHRITIS
     Dosage: 50 MG, QWK
     Dates: start: 20040824, end: 201301

REACTIONS (9)
  - Hepatic failure [Recovered/Resolved]
  - Renal failure [Recovered/Resolved]
  - Arthralgia [Recovered/Resolved]
  - Memory impairment [Not Recovered/Not Resolved]
  - Gastric bypass [Recovered/Resolved]
  - Thrombosis [Not Recovered/Not Resolved]
  - Procedural hypertension [Not Recovered/Not Resolved]
  - Pneumonia [Recovered/Resolved]
  - Joint swelling [Not Recovered/Not Resolved]
